FAERS Safety Report 5706418-9 (Version None)
Quarter: 2008Q2

REPORT INFORMATION
  Report Type: 
  Country: None (occurrence: None)
  Receive Date: 20080411
  Receipt Date: 20080328
  Transmission Date: 20081010
  Serious: Yes (Other)
  Sender: FDA-Public Use
  Company Number: GXKR2008IT03228

PATIENT
  Age: 67 Year
  Sex: Male

DRUGS (5)
  1. DEXAMETHASONE [Suspect]
     Indication: MULTIPLE MYELOMA
     Dosage: 40MG, QD;
  2. THALIDOMIDE [Suspect]
     Indication: MULTIPLE MYELOMA
     Dosage: 100MG, QD;, 200MG, QD;
  3. FENTANYL [Concomitant]
  4. ROENTGEN THERAPY (NO INGREDIENTS/SUBSTANCES) [Concomitant]
  5. PAMIDRONIC ACID (PAMIDRONIC ACID) [Concomitant]

REACTIONS (3)
  - AGRANULOCYTOSIS [None]
  - COGNITIVE DISORDER [None]
  - SOMNOLENCE [None]
